FAERS Safety Report 9746201 (Version 2)
Quarter: 2014Q1

REPORT INFORMATION
  Report Type: Spontaneous
  Country: US (occurrence: US)
  Receive Date: 20131211
  Receipt Date: 20140202
  Transmission Date: 20141002
  Serious: Yes (Other)
  Sender: FDA-Public Use
  Company Number: US-TEVA-449573USA

PATIENT
  Age: 38 Year
  Sex: Female
  Weight: 88.53 kg

DRUGS (1)
  1. PARAGARD 380A [Suspect]
     Indication: CONTRACEPTION
     Route: 015
     Dates: start: 201305, end: 20131202

REACTIONS (4)
  - Pregnancy [Recovered/Resolved]
  - Vaginal haemorrhage [Recovered/Resolved]
  - Uterine spasm [Recovered/Resolved]
  - Drug ineffective [Unknown]
